FAERS Safety Report 19560080 (Version 2)
Quarter: 2021Q3

REPORT INFORMATION
  Report Type: Spontaneous
  Country: US (occurrence: US)
  Receive Date: 20210714
  Receipt Date: 20210914
  Transmission Date: 20211014
  Serious: No
  Sender: FDA-Public Use
  Company Number: US-SK LIFE SCIENCE, INC-SKPVG-2021-000186

PATIENT

DRUGS (1)
  1. XCOPRI [Suspect]
     Active Substance: CENOBAMATE
     Indication: SEIZURE
     Dosage: 50 MILLIGRAM, QD, 50MG/100MG TITRATION
     Route: 048
     Dates: start: 20201218

REACTIONS (3)
  - Seizure [Not Recovered/Not Resolved]
  - Hypersensitivity [Unknown]
  - Irritability [Not Recovered/Not Resolved]
